FAERS Safety Report 6769643-4 (Version None)
Quarter: 2010Q2

REPORT INFORMATION
  Report Type: 
  Country: None (occurrence: None)
  Receive Date: 20100615
  Receipt Date: 20100615
  Transmission Date: 20101027
  Serious: Yes (Hospitalization, Other)
  Sender: FDA-Public Use
  Company Number: US-ABBOTT-08P-163-0445050-00

PATIENT
  Sex: Female
  Weight: 52.664 kg

DRUGS (14)
  1. HUMIRA [Suspect]
     Indication: RHEUMATOID ARTHRITIS
     Route: 058
     Dates: start: 20030101, end: 20040101
  2. HUMIRA [Suspect]
     Dates: start: 20040101, end: 20050901
  3. HUMIRA [Suspect]
     Dates: start: 20050101, end: 20080101
  4. HUMIRA [Suspect]
     Dates: start: 20080101, end: 20091201
  5. HUMIRA [Suspect]
     Dates: start: 20091201, end: 20100301
  6. METHOTREXATE [Concomitant]
     Indication: RHEUMATOID ARTHRITIS
     Route: 058
     Dates: start: 20030101
  7. FOLIC ACID [Concomitant]
     Indication: VITAMIN SUPPLEMENTATION
     Route: 048
  8. ARAVA [Concomitant]
     Indication: RHEUMATOID ARTHRITIS
     Route: 048
  9. SULINDAC [Concomitant]
     Indication: DRUG USE FOR UNKNOWN INDICATION
     Route: 048
  10. VITAMIN D [Concomitant]
     Indication: DRUG USE FOR UNKNOWN INDICATION
     Route: 048
  11. CALCIUM W/D [Concomitant]
     Indication: DRUG USE FOR UNKNOWN INDICATION
     Route: 048
  12. FISH OIL [Concomitant]
     Indication: DRUG USE FOR UNKNOWN INDICATION
     Dosage: 1 D
     Route: 048
  13. CENTRUM SILVER [Concomitant]
     Indication: DRUG USE FOR UNKNOWN INDICATION
     Dosage: 1 D
  14. HYPOTEARS DDPF [Concomitant]
     Indication: DRY EYE
     Route: 047

REACTIONS (13)
  - ARTHRITIS [None]
  - GALLBLADDER DISORDER [None]
  - GALLBLADDER OPERATION [None]
  - HEPATIC STEATOSIS [None]
  - LIVER FUNCTION TEST ABNORMAL [None]
  - LOCALISED INFECTION [None]
  - PRECANCEROUS SKIN LESION [None]
  - PRURITUS [None]
  - RASH [None]
  - RASH MACULAR [None]
  - STITCH ABSCESS [None]
  - URTICARIA [None]
  - VASCULITIS [None]
